FAERS Safety Report 4710540-3 (Version None)
Quarter: 2005Q3

REPORT INFORMATION
  Report Type: 
  Country: None (occurrence: None)
  Receive Date: 20050707
  Receipt Date: 20050624
  Transmission Date: 20060218
  Serious: Yes (Other)
  Sender: FDA-Public Use
  Company Number: 2005089719

PATIENT
  Age: 70 Year
  Sex: Male

DRUGS (6)
  1. ESTRACYT (ESTRAMUSTINE PHOSPHATE SODIUM) [Suspect]
     Indication: PROSTATE CANCER
     Dosage: 4 TABLETS ORAL ; 2 TABLETS ORAL
     Route: 048
     Dates: start: 20040609
  2. ESTRACYT (ESTRAMUSTINE PHOSPHATE SODIUM) [Suspect]
     Indication: PROSTATE CANCER
     Dosage: 4 TABLETS ORAL ; 2 TABLETS ORAL
     Route: 048
     Dates: start: 20050201
  3. ASPIRIN [Concomitant]
  4. PAROXETINE HYDROCHLORIDE [Concomitant]
  5. CELIPROLOL HYDROCHLORIDE [Concomitant]
  6. STILNOX (ZOLPIDEM) [Concomitant]

REACTIONS (2)
  - ANAEMIA [None]
  - LEUKOCYTOSIS [None]
